FAERS Safety Report 10636107 (Version 2)
Quarter: 2014Q4

REPORT INFORMATION
  Report Type: Report from Study
  Country: JP (occurrence: JP)
  Receive Date: 20141205
  Receipt Date: 20141205
  Transmission Date: 20150529
  Serious: Yes (Death, Hospitalization, Other)
  Sender: FDA-Public Use
  Company Number: JP-GLAXOSMITHKLINE-A201409527

PATIENT
  Age: 75 Year
  Sex: Female
  Weight: 44 kg

DRUGS (12)
  1. PREDONINE [Concomitant]
     Active Substance: PREDNISOLONE\PREDNISOLONE ACETATE\PREDNISOLONE SODIUM SUCCINATE
     Indication: IMMUNE THROMBOCYTOPENIC PURPURA
     Route: 048
     Dates: end: 20120209
  2. FOSAMAC 35MG [Concomitant]
     Route: 048
  3. TAKEPRON [Concomitant]
     Active Substance: LANSOPRAZOLE
     Route: 048
     Dates: start: 20110905, end: 20120209
  4. ELTROMBOPAG [Suspect]
     Active Substance: ELTROMBOPAG
     Route: 048
     Dates: start: 20110218, end: 20120209
  5. FOSAMAC 35MG [Concomitant]
     Route: 048
     Dates: end: 20120209
  6. NISSEKI POLYGLOBIN-N [Concomitant]
     Indication: IMMUNE THROMBOCYTOPENIC PURPURA
     Route: 042
     Dates: start: 20120204, end: 20120208
  7. ELTROMBOPAG [Suspect]
     Active Substance: ELTROMBOPAG
     Indication: IMMUNE THROMBOCYTOPENIC PURPURA
     Route: 048
     Dates: start: 20110120, end: 20110203
  8. AMLODIN [Concomitant]
     Active Substance: AMLODIPINE BESYLATE
     Route: 048
     Dates: end: 20120209
  9. ELTROMBOPAG [Suspect]
     Active Substance: ELTROMBOPAG
     Route: 048
     Dates: start: 20110204, end: 20110217
  10. ADONA (AC-17) [Concomitant]
     Indication: IMMUNE THROMBOCYTOPENIC PURPURA
     Route: 048
     Dates: end: 20120209
  11. METHISTA [Concomitant]
     Active Substance: CARBOCYSTEINE
     Route: 048
     Dates: end: 20110901
  12. NISSEKI POLYGLOBIN-N [Concomitant]
     Indication: IMMUNE THROMBOCYTOPENIC PURPURA
     Route: 042
     Dates: start: 20110901, end: 20110905

REACTIONS (3)
  - Glioblastoma [Fatal]
  - Upper gastrointestinal haemorrhage [Recovered/Resolved]
  - Cervical vertebral fracture [Recovered/Resolved]

NARRATIVE: CASE EVENT DATE: 20110901
